FAERS Safety Report 19441793 (Version 1)
Quarter: 2021Q2

REPORT INFORMATION
  Report Type: Spontaneous
  Country: AU (occurrence: AU)
  Receive Date: 20210621
  Receipt Date: 20210621
  Transmission Date: 20210717
  Serious: Yes (Other)
  Sender: FDA-Public Use
  Company Number: AU-ACCORD-228550

PATIENT
  Age: 42 Year
  Sex: Male

DRUGS (1)
  1. CISPLATIN. [Suspect]
     Active Substance: CISPLATIN
     Indication: NASOPHARYNGEAL CANCER
     Dosage: WEEKS 1 AND 4 AND 7 (HIGH?DOSE )
     Dates: start: 201701, end: 201702

REACTIONS (2)
  - Off label use [Unknown]
  - Haematotoxicity [Unknown]

NARRATIVE: CASE EVENT DATE: 201702
